FAERS Safety Report 8872657 (Version 1)
Quarter: 2012Q4

REPORT INFORMATION
  Report Type: 
  Country: US (occurrence: US)
  Receive Date: 20121026
  Receipt Date: 20121026
  Transmission Date: 20130627
  Serious: No
  Sender: FDA-Public Use
  Company Number: US-AMGEN-USASP2012049317

PATIENT
  Age: 47 Year
  Sex: Male

DRUGS (7)
  1. ENBREL [Suspect]
     Indication: PSORIASIS
     Dosage: 50 mg twice a week for 3 months, 50 mg once a week thereafter
     Route: 058
  2. ASA [Concomitant]
     Dosage: 81 mg, UNK
  3. METOPROLOL [Concomitant]
     Dosage: 25 mg, UNK
  4. SIMVASTATIN [Concomitant]
     Dosage: 10 mg, UNK
  5. RANITIDINE [Concomitant]
     Dosage: 75 mg, UNK
  6. PLAVIX [Concomitant]
     Dosage: 75 mg, UNK
  7. LISINOPRIL [Concomitant]
     Dosage: 5 mg, UNK

REACTIONS (3)
  - Injection site erythema [Unknown]
  - Injection site bruising [Unknown]
  - Injection site warmth [Unknown]
